FAERS Safety Report 14383200 (Version 2)
Quarter: 2018Q1

REPORT INFORMATION
  Report Type: Report from Study
  Country: None (occurrence: DE)
  Receive Date: 20180115
  Receipt Date: 20180123
  Transmission Date: 20180509
  Serious: Yes (Other)
  Sender: FDA-Public Use
  Company Number: DE-ABBVIE-18K-062-2220359-00

PATIENT
  Age: 49 Year
  Sex: Female

DRUGS (3)
  1. BIO-H-TIN [Concomitant]
     Indication: PRODUCT USED FOR UNKNOWN INDICATION
     Dates: start: 2017
  2. HUMIRA [Suspect]
     Active Substance: ADALIMUMAB
     Indication: CROHN^S DISEASE
     Route: 058
     Dates: start: 201708
  3. LEVODOP NEURAXPHARM [Concomitant]
     Indication: PRODUCT USED FOR UNKNOWN INDICATION

REACTIONS (8)
  - Dry eye [Not Recovered/Not Resolved]
  - Visual impairment [Not Recovered/Not Resolved]
  - Device issue [Unknown]
  - Crohn^s disease [Recovered/Resolved]
  - Nasopharyngitis [Not Recovered/Not Resolved]
  - Retinal detachment [Unknown]
  - Bone density increased [Not Recovered/Not Resolved]
  - Drug ineffective [Unknown]

NARRATIVE: CASE EVENT DATE: 201712
